FAERS Safety Report 9398906 (Version 2)
Quarter: 2013Q3

REPORT INFORMATION
  Report Type: Report from Study
  Country: GB (occurrence: GB)
  Receive Date: 20130712
  Receipt Date: 20130723
  Transmission Date: 20140515
  Serious: Yes (Death, Hospitalization)
  Sender: FDA-Public Use
  Company Number: GB-PFIZER INC-2013201180

PATIENT
  Age: 72 Year
  Sex: Male
  Weight: 75 kg

DRUGS (34)
  1. TEMSIROLIMUS [Suspect]
     Indication: MANTLE CELL LYMPHOMA
     Dosage: 50 MG, WEEKLY
     Route: 042
     Dates: start: 20130110, end: 20130228
  2. ALLOPURINOL [Concomitant]
     Indication: PREMEDICATION
     Dosage: 300 MG, SINGLE
     Route: 048
  3. ALLOPURINOL [Concomitant]
     Dosage: 300 MG, 5 IN A DAY
  4. LOPERAMIDE [Concomitant]
     Indication: PREMEDICATION
     Dosage: 2-4 MG, AS NEEDED
     Route: 048
  5. LOPERAMIDE [Concomitant]
     Dosage: 4 MG, 4X/DAY
  6. ACETYLSALICYLIC ACID [Concomitant]
     Dosage: 75 MG, 1X/DAY
     Route: 048
  7. CETIRIZINE [Concomitant]
     Dosage: 10 MG, UNK
     Route: 048
  8. FUROSEMIDE [Concomitant]
     Dosage: 20-40MG DAILY
     Route: 048
  9. FUROSEMIDE [Concomitant]
     Dosage: 20 MG, 1X/DAY
     Route: 042
  10. FUROSEMIDE [Concomitant]
     Dosage: 40 MG, 1X/DAY
  11. OMEPRAZOLE [Concomitant]
     Dosage: 20 MG, 1X/DAY
     Route: 048
  12. PERINDOPRIL [Concomitant]
     Dosage: 2 MG, 1X/DAY
     Route: 048
     Dates: end: 20130313
  13. PRAVASTATIN [Concomitant]
     Dosage: 40 MG, IN ONE HR OF SLEEP
     Route: 048
  14. CALCIUM CARBONATE [Concomitant]
     Dosage: 1.25 G, UNK
     Route: 048
  15. SANDO K [Concomitant]
     Dosage: 24 MEQ, 2X/DAY
     Route: 048
  16. SANDO K [Concomitant]
     Dosage: 24 MEQ, 3X/DAY
  17. ZINC SULFATE [Concomitant]
     Dosage: 125 MG, 1X/DAY
     Route: 048
  18. PARACETAMOL [Concomitant]
     Dosage: 1 G, AS NEEDED
     Route: 042
  19. PHOSPHATE-SANDOZ [Concomitant]
     Dosage: 32.2 MEQ, 3X/DAY
     Route: 048
  20. MAGNESIUM [Concomitant]
     Dosage: 10 MEQ, 3X/DAY
     Route: 048
  21. MORPHINE SULFATE [Concomitant]
     Dosage: 5-20 MG AS NEEDED
     Route: 048
  22. ZOPICLONE [Concomitant]
     Dosage: 3.75 MG, IN ONE HR OF SLEEP
     Route: 048
  23. ENSURE PLUS [Concomitant]
     Dosage: 125 G, 3X/DAY
  24. LENALIDOMIDE [Concomitant]
     Dosage: 5 MG, 1X/DAY
     Route: 048
  25. LENALIDOMIDE [Concomitant]
     Dosage: 10 MG, 1X/DAY
  26. RASBURICASE [Concomitant]
     Dosage: 15 MG, SINGLE
     Route: 042
  27. GAVISCON ADVANCE [Concomitant]
     Dosage: 10 ML, IN ONE AS NECESSARY
     Route: 048
  28. TRANEXAMIC ACID [Concomitant]
     Dosage: 1000 MG, 3X/DAY
     Route: 048
  29. TRANEXAMIC ACID [Concomitant]
     Dosage: 1000 MG, 3X/DAY
     Route: 042
  30. SALBUTAMOL [Concomitant]
     Dosage: 5 MG, 4X/DAY
     Route: 055
  31. MIDAZOLAM [Concomitant]
     Dosage: 2.5 MG, IN ONE AS NEEDED
     Route: 048
  32. ONDANSETRON [Concomitant]
     Indication: PREMEDICATION
     Dosage: 8 MG, 2X/DAY
     Route: 048
  33. ONDANSETRON [Concomitant]
     Indication: NAUSEA
  34. PIRITON [Concomitant]
     Indication: PREMEDICATION
     Dosage: 10 MG, UNK
     Route: 042

REACTIONS (4)
  - Disease progression [Fatal]
  - Mantle cell lymphoma [Fatal]
  - Oral candidiasis [Recovering/Resolving]
  - Infected skin ulcer [Not Recovered/Not Resolved]
